FAERS Safety Report 8884764 (Version 3)
Quarter: 2017Q1

REPORT INFORMATION
  Report Type: Report from Study
  Country: US (occurrence: US)
  Receive Date: 20121105
  Receipt Date: 20170102
  Transmission Date: 20170429
  Serious: Yes (Other)
  Sender: FDA-Public Use
  Company Number: US-AMGEN-USASP2012069291

PATIENT
  Age: 73 Year
  Sex: Female

DRUGS (7)
  1. ENBREL [Suspect]
     Active Substance: ETANERCEPT
     Dosage: UNK
     Route: 065
  2. VITAMINS, OTHER COMBINATIONS [Concomitant]
     Dosage: UNK
  3. ENBREL [Suspect]
     Active Substance: ETANERCEPT
     Dosage: UNK
     Route: 065
  4. FERROUS SULFATE. [Concomitant]
     Active Substance: FERROUS SULFATE
     Dosage: UNK
  5. BABY ASPIRIN [Concomitant]
     Active Substance: ASPIRIN
     Dosage: UNK
  6. ENBREL [Suspect]
     Active Substance: ETANERCEPT
     Indication: PSORIASIS
     Dosage: UNK, QWK
     Route: 065
  7. ENBREL [Suspect]
     Active Substance: ETANERCEPT
     Dosage: UNK
     Route: 065

REACTIONS (10)
  - Psoriasis [Unknown]
  - Hip arthroplasty [Unknown]
  - Peripheral swelling [Unknown]
  - Injection site mass [Recovered/Resolved]
  - Arthropathy [Unknown]
  - Vascular rupture [Unknown]
  - Fatigue [Unknown]
  - Injection site pain [Recovered/Resolved]
  - Inappropriate schedule of drug administration [Unknown]
  - Injection site induration [Recovered/Resolved]

NARRATIVE: CASE EVENT DATE: 201202
